FAERS Safety Report 16214489 (Version 1)
Quarter: 2019Q2

REPORT INFORMATION
  Report Type: Spontaneous
  Country: UA (occurrence: UA)
  Receive Date: 20190418
  Receipt Date: 20190418
  Transmission Date: 20190711
  Serious: Yes (Other)
  Sender: FDA-Public Use
  Company Number: UA-ALLERGAN-1916623US

PATIENT
  Sex: Female

DRUGS (1)
  1. PROGESTERONE UNK [Suspect]
     Active Substance: PROGESTERONE
     Indication: PREGNANCY
     Dosage: UNK
     Route: 065
     Dates: start: 2012

REACTIONS (6)
  - Abortion spontaneous [Unknown]
  - Off label use [Unknown]
  - Asphyxia [Recovered/Resolved]
  - Muscle spasms [Recovered/Resolved]
  - Pregnancy [Unknown]
  - Myalgia [Recovered/Resolved]

NARRATIVE: CASE EVENT DATE: 2012
